FAERS Safety Report 24651543 (Version 6)
Quarter: 2025Q1

REPORT INFORMATION
  Report Type: Spontaneous
  Country: US (occurrence: US)
  Receive Date: 20241122
  Receipt Date: 20250213
  Transmission Date: 20250409
  Serious: Yes (Other)
  Sender: BRISTOL-MYERS SQUIBB COMPANY
  Company Number: US-BRISTOL-MYERS SQUIBB COMPANY-2024-179553

PATIENT
  Age: 74 Year
  Sex: Female

DRUGS (3)
  1. LENALIDOMIDE [Suspect]
     Active Substance: LENALIDOMIDE
     Indication: Plasma cell myeloma
     Dosage: TAKE 1 WHOLE CAPSULE BY MOUTH WITH WATER W/ OR W/O FOOD AT THE SAME TIME EVERY DAY FOR 14 DAYS ON AN
     Route: 048
  2. LENALIDOMIDE [Suspect]
     Active Substance: LENALIDOMIDE
     Dosage: TAKE 1 WHOLE CAPSULE BY MOUTH WITH WATER WITH OR WITHOUT FOOD AT SAME TIME DAILY FOR 14 DAYS ON, 7 D
     Route: 048
  3. LENALIDOMIDE [Suspect]
     Active Substance: LENALIDOMIDE
     Dosage: TAKE 1 CAPSULE BY MOUTH DAILY AT THE SAME TIME EACH DAY
     Route: 048

REACTIONS (18)
  - Cardiac flutter [Not Recovered/Not Resolved]
  - Product dose omission in error [Unknown]
  - Vision blurred [Not Recovered/Not Resolved]
  - Memory impairment [Not Recovered/Not Resolved]
  - Product dose omission issue [Unknown]
  - Lymphadenopathy [Recovering/Resolving]
  - Intraocular pressure increased [Recovering/Resolving]
  - Varicose vein [Not Recovered/Not Resolved]
  - Product use issue [Unknown]
  - Paraesthesia [Recovered/Resolved]
  - Night sweats [Not Recovered/Not Resolved]
  - Product prescribing issue [Unknown]
  - Inappropriate schedule of product administration [Unknown]
  - Therapy interrupted [Unknown]
  - Rhinorrhoea [Unknown]
  - Cough [Unknown]
  - Thermal burns of eye [Unknown]
  - Influenza [Unknown]

NARRATIVE: CASE EVENT DATE: 20240101
